FAERS Safety Report 15531742 (Version 1)
Quarter: 2018Q4

REPORT INFORMATION
  Report Type: Spontaneous
  Country: FR (occurrence: FR)
  Receive Date: 20181019
  Receipt Date: 20181019
  Transmission Date: 20190205
  Serious: Yes (Hospitalization)
  Sender: FDA-Public Use
  Company Number: FR-TEVA-2018-FR-965948

PATIENT
  Age: 33 Year
  Sex: Female
  Weight: 38.5 kg

DRUGS (7)
  1. EFFEXOR [Suspect]
     Active Substance: VENLAFAXINE HYDROCHLORIDE
     Indication: ANXIETY
     Dosage: 1 DOSAGE FORMS DAILY;
     Route: 048
     Dates: start: 20180701, end: 20180831
  2. ACIDE FOLIQUE [Concomitant]
     Active Substance: FOLIC ACID
  3. INEXIUM [Concomitant]
     Active Substance: ESOMEPRAZOLE
  4. DIFFU K, G?LULE [Concomitant]
     Active Substance: POTASSIUM CHLORIDE
  5. ALPRAZOLAM. [Concomitant]
     Active Substance: ALPRAZOLAM
  6. VITAMINE B12 [Concomitant]
     Active Substance: CYANOCOBALAMIN
  7. FUROSEMIDE. [Suspect]
     Active Substance: FUROSEMIDE
     Indication: PURGING
     Route: 048
     Dates: start: 20180615, end: 20180817

REACTIONS (5)
  - Urinary retention [Not Recovered/Not Resolved]
  - Hyponatraemia [Recovered/Resolved]
  - Hypokalaemia [Recovered/Resolved]
  - Intentional overdose [Recovered/Resolved]
  - Purging [Recovered/Resolved]

NARRATIVE: CASE EVENT DATE: 20180615
